FAERS Safety Report 8986067 (Version 1)
Quarter: 2012Q4

REPORT INFORMATION
  Report Type: Spontaneous
  Country: US (occurrence: None)
  Receive Date: 20121218
  Receipt Date: 20121218
  Transmission Date: 20130627
  Serious: Yes (Other)
  Sender: FDA-Public Use
  Company Number: ADR-2012302138

PATIENT
  Age: 65 Year
  Sex: Male

DRUGS (4)
  1. ALFUZOSIN HYDROCHLORIDE EXTENDED RELEASE [Suspect]
     Indication: BENIGN PROSTATIC HYPERPLASIA
     Route: 048
     Dates: start: 2010
  2. ALFUZOSIN HYDROCHLORIDE EXTENDED RELEASE [Suspect]
     Route: 048
     Dates: start: 2010
  3. ALFUZOSIN HYDROCHLORIDE EXTENDED RELEASE [Suspect]
     Indication: BENIGN PROSTATIC HYPERPLASIA
  4. ALFUZOSIN HYDROCHLORIDE EXTENDED RELEASE [Suspect]

REACTIONS (3)
  - Male genital atrophy [None]
  - Erectile dysfunction [None]
  - Male sexual dysfunction [None]
